FAERS Safety Report 15944742 (Version 1)
Quarter: 2019Q1

REPORT INFORMATION
  Report Type: Spontaneous
  Country: PR (occurrence: PR)
  Receive Date: 20190211
  Receipt Date: 20190211
  Transmission Date: 20190417
  Serious: No
  Sender: FDA-Public Use
  Company Number: PR-PFIZER INC-2019055709

PATIENT
  Age: 13 Year
  Sex: Male
  Weight: 36.29 kg

DRUGS (1)
  1. GENOTROPIN [Suspect]
     Active Substance: SOMATROPIN
     Dosage: 1.6 MG, 1X/DAY
     Route: 030

REACTIONS (2)
  - Headache [Unknown]
  - Incorrect route of product administration [Unknown]
